FAERS Safety Report 23660075 (Version 1)
Quarter: 2024Q1

REPORT INFORMATION
  Report Type: Spontaneous
  Country: RU (occurrence: None)
  Receive Date: 20240321
  Receipt Date: 20240321
  Transmission Date: 20240410
  Serious: Yes (Other)
  Sender: FDA-Public Use
  Company Number: 2024A065241

PATIENT
  Sex: Female

DRUGS (5)
  1. FASENRA [Suspect]
     Active Substance: BENRALIZUMAB
     Indication: Asthma
     Route: 058
     Dates: start: 20230330
  2. FASENRA [Suspect]
     Active Substance: BENRALIZUMAB
     Indication: Asthma
     Route: 058
     Dates: start: 20240121
  3. FOSTER [Concomitant]
     Active Substance: BECLOMETHASONE\FORMOTEROL
  4. MONTRAL ML [Concomitant]
     Dosage: 10 MG, A PERIOD OF THE THERAPY IS 4-5 MONTHS
     Dates: start: 202311
  5. SPIRIVA [Concomitant]
     Active Substance: TIOTROPIUM BROMIDE MONOHYDRATE

REACTIONS (2)
  - Dermatitis contact [Unknown]
  - Fixed eruption [Unknown]
